FAERS Safety Report 7755151-0 (Version None)
Quarter: 2011Q3

REPORT INFORMATION
  Report Type: 
  Country: None (occurrence: None)
  Receive Date: 20110916
  Receipt Date: 20110909
  Transmission Date: 20111222
  Serious: No
  Sender: FDA-Public Use
  Company Number: US-PFIZER INC-2011212992

PATIENT
  Sex: Female

DRUGS (1)
  1. PRISTIQ [Suspect]
     Dosage: 50 MG, UNK
     Route: 048

REACTIONS (4)
  - MEDICATION RESIDUE [None]
  - DRUG INEFFECTIVE [None]
  - CONSTIPATION [None]
  - PAIN [None]
